FAERS Safety Report 7456255-2 (Version None)
Quarter: 2011Q2

REPORT INFORMATION
  Report Type: 
  Country: None (occurrence: None)
  Receive Date: 20110503
  Receipt Date: 20110428
  Transmission Date: 20111010
  Serious: Yes (Hospitalization, Other)
  Sender: FDA-Public Use
  Company Number: BR-SANOFI-AVENTIS-2011SA013483

PATIENT
  Sex: Female
  Weight: 79 kg

DRUGS (13)
  1. APIDRA SOLOSTAR [Concomitant]
     Indication: TYPE 2 DIABETES MELLITUS
     Dosage: ACCORDING TO GLUCOSE LEVEL
     Route: 058
  2. SIMVASTATIN [Concomitant]
     Route: 048
  3. CLOPIDOGREL [Concomitant]
     Route: 048
  4. METFORMIN HYDROCHLORIDE [Concomitant]
     Route: 048
  5. MONOCORDIL [Concomitant]
     Route: 048
  6. LANTUS [Suspect]
     Route: 058
  7. SOLOSTAR [Concomitant]
  8. ENALAPRIL [Concomitant]
     Indication: HYPERTENSION
     Route: 048
  9. SELOZOK [Concomitant]
     Route: 048
  10. SOLOSTAR [Suspect]
     Route: 058
  11. LANTUS [Suspect]
     Indication: TYPE 2 DIABETES MELLITUS
     Route: 058
  12. LANTUS [Suspect]
     Route: 058
  13. GLIMEPIRIDE [Concomitant]
     Route: 048

REACTIONS (6)
  - INJECTION SITE NODULE [None]
  - INJECTION SITE PAIN [None]
  - INJECTION SITE HAEMORRHAGE [None]
  - HYPERGLYCAEMIA [None]
  - ANGINA PECTORIS [None]
  - INJECTION SITE HAEMATOMA [None]
